FAERS Safety Report 11275112 (Version 2)
Quarter: 2015Q3

REPORT INFORMATION
  Report Type: Spontaneous
  Country: FR (occurrence: None)
  Receive Date: 20150714
  Receipt Date: 20150804
  Transmission Date: 20151125
  Serious: Yes (Hospitalization, Other)
  Sender: FDA-Public Use
  Company Number: FR-H14001-15-01156

PATIENT
  Age: 55 Year
  Sex: Female
  Weight: 50.03 kg

DRUGS (3)
  1. ARACYTINE [Suspect]
     Active Substance: CYTARABINE
     Indication: ACUTE MYELOID LEUKAEMIA
     Dosage: INTRAVENOUS (NOT OTHERWISE SPECIFIED)
     Route: 042
     Dates: start: 20080620, end: 20080626
  2. CERUBIDINE [Suspect]
     Active Substance: DAUNORUBICIN HYDROCHLORIDE
     Indication: ACUTE MYELOID LEUKAEMIA
     Dosage: INTRAVENOUS (NOT OTHERWISE SPECIFIED)
     Route: 042
     Dates: start: 20080620, end: 20080622
  3. GEMTUZUMAB OZOGAMICIN [Suspect]
     Active Substance: GEMTUZUMAB OZOGAMICIN
     Indication: ACUTE MYELOID LEUKAEMIA
     Dosage: 3 MG/M2 (ONE DAYS 1, DAY 4, DAY 7)
     Route: 041
     Dates: start: 20080620, end: 20080626

REACTIONS (7)
  - Acute respiratory distress syndrome [None]
  - Acute myeloid leukaemia recurrent [None]
  - Altered state of consciousness [None]
  - Septic shock [None]
  - Fall [None]
  - Haemoglobin decreased [None]
  - Thrombocytopenia [None]

NARRATIVE: CASE EVENT DATE: 2008
